FAERS Safety Report 4999572-8 (Version None)
Quarter: 2006Q2

REPORT INFORMATION
  Report Type: 
  Country: None (occurrence: None)
  Receive Date: 20060511
  Receipt Date: 20060419
  Transmission Date: 20061013
  Serious: Yes (Life-Threatening, Hospitalization)
  Sender: FDA-Public Use
  Company Number: NL-GILEAD-2006-0009485

PATIENT
  Sex: Male
  Weight: 80 kg

DRUGS (20)
  1. VIREAD [Suspect]
     Indication: HIV INFECTION
     Route: 048
     Dates: start: 20050607, end: 20060325
  2. EMTRIVA [Suspect]
     Route: 048
     Dates: start: 20050706, end: 20060325
  3. BLINDED THERAPY [Suspect]
     Indication: HIV INFECTION
     Route: 048
     Dates: start: 20050706, end: 20060325
  4. BLINDED THERAPY [Suspect]
     Dates: start: 20060405, end: 20060405
  5. BLINDED THERAPY [Suspect]
     Dates: start: 20060411
  6. KLACID [Suspect]
     Indication: MYCOBACTERIUM AVIUM COMPLEX INFECTION
     Route: 048
     Dates: start: 20060114, end: 20060330
  7. KALETRA [Concomitant]
     Route: 048
  8. INVIRASE [Concomitant]
     Route: 048
     Dates: start: 20050706, end: 20060325
  9. LOPID [Concomitant]
     Route: 048
     Dates: start: 20020605, end: 20060325
  10. GLUCOPHAGE [Concomitant]
     Route: 048
     Dates: start: 20060126, end: 20060325
  11. CORTIMOXAZOL [Concomitant]
     Route: 048
     Dates: start: 19930524, end: 20060325
  12. MYAMBUTOL [Concomitant]
     Route: 048
     Dates: start: 20060114, end: 20060403
  13. INSULIN INSULATARD NPH NORDISK [Concomitant]
     Route: 058
     Dates: start: 20060120
  14. INSULIN [Concomitant]
     Dates: start: 20060120
  15. PREDNISON [Concomitant]
     Route: 048
     Dates: start: 20060114
  16. FUZEON [Concomitant]
     Route: 048
     Dates: start: 20050706, end: 20060325
  17. ACTRAPID [Concomitant]
     Route: 058
     Dates: start: 20060301
  18. PREDNISOLONE ACETATE OPHTHALMIC SUSPENSION/DROPS [Concomitant]
     Route: 047
     Dates: start: 19970713
  19. FLUCONAZOLE [Concomitant]
     Route: 048
     Dates: start: 19950720, end: 20060325
  20. PREDISOLON [Concomitant]
     Route: 048
     Dates: start: 20060114

REACTIONS (5)
  - BLOOD ALKALINE PHOSPHATASE INCREASED [None]
  - BLOOD LACTATE DEHYDROGENASE INCREASED [None]
  - DYSPNOEA [None]
  - PYREXIA [None]
  - RENAL FAILURE ACUTE [None]
